FAERS Safety Report 5719573-1 (Version None)
Quarter: 2008Q2

REPORT INFORMATION
  Report Type: 
  Country: None (occurrence: None)
  Receive Date: 20080428
  Receipt Date: 20080421
  Transmission Date: 20081010
  Serious: Yes (Other)
  Sender: FDA-Public Use
  Company Number: A0724929A

PATIENT
  Age: 24 Year
  Sex: Female

DRUGS (10)
  1. SUMATRIPTAN SUCCINATE [Suspect]
     Indication: MIGRAINE
     Dosage: 6MG SINGLE DOSE
     Route: 058
     Dates: start: 20070902, end: 20070902
  2. VICODIN [Concomitant]
  3. PERCOCET [Concomitant]
  4. UNISOM [Concomitant]
  5. DEMEROL [Concomitant]
  6. PHENERGAN [Concomitant]
  7. FLONASE [Concomitant]
  8. TYLENOL W/ CODEINE [Concomitant]
  9. PROCARDIA [Concomitant]
  10. AMBIEN [Concomitant]

REACTIONS (3)
  - BETA HAEMOLYTIC STREPTOCOCCAL INFECTION [None]
  - DRUG EXPOSURE DURING PREGNANCY [None]
  - POSTPARTUM HAEMORRHAGE [None]
